FAERS Safety Report 5655750-6 (Version None)
Quarter: 2008Q1

REPORT INFORMATION
  Report Type: 
  Country: None (occurrence: None)
  Receive Date: 20080307
  Receipt Date: 20071113
  Transmission Date: 20080703
  Serious: Yes (Hospitalization, Other)
  Sender: FDA-Public Use
  Company Number: JP-PFIZER INC-2008017793

PATIENT
  Age: 67 Year
  Sex: Male

DRUGS (2)
  1. PREDNISOLONE [Suspect]
     Indication: DERMATOMYOSITIS
     Dosage: DAILY DOSE:60MG-FREQ:DAILY: STARTING DOSE
  2. PREDNISOLONE [Suspect]
     Dosage: DAILY DOSE:5MG-FREQ:DOSE AT ONSET OF BACTERIAL PNEUMONIA

REACTIONS (2)
  - PHARYNGEAL CANCER STAGE UNSPECIFIED [None]
  - PNEUMONIA BACTERIAL [None]
